FAERS Safety Report 6107749-3 (Version None)
Quarter: 2009Q1

REPORT INFORMATION
  Report Type: 
  Country: None (occurrence: None)
  Receive Date: 20090309
  Receipt Date: 20090306
  Transmission Date: 20090719
  Serious: Yes (Death)
  Sender: FDA-Public Use
  Company Number: A0771924A

PATIENT
  Age: 52 Year
  Sex: Male

DRUGS (4)
  1. MELPHALAN [Suspect]
     Indication: AMYLOIDOSIS
     Dosage: 50MGM2 PER DAY
     Route: 042
     Dates: start: 20071105, end: 20071106
  2. VELCADE [Suspect]
     Indication: AMYLOIDOSIS
     Route: 042
  3. DEXAMETHASONE [Suspect]
     Indication: AMYLOIDOSIS
     Route: 048
  4. NOREPINEPHRINE BITARTRATE [Concomitant]
     Indication: BLOOD PRESSURE SYSTOLIC DECREASED

REACTIONS (4)
  - ABDOMINAL DISTENSION [None]
  - CARDIAC ARREST [None]
  - OLIGURIA [None]
  - VENTRICULAR FIBRILLATION [None]
